FAERS Safety Report 4918608-3 (Version None)
Quarter: 2006Q1

REPORT INFORMATION
  Report Type: 
  Country: None (occurrence: None)
  Receive Date: 20060221
  Receipt Date: 20060221
  Transmission Date: 20060701
  Serious: Yes (Other)
  Sender: FDA-Public Use
  Company Number: None

PATIENT
  Age: 35 Year
  Sex: Female
  Weight: 69.4003 kg

DRUGS (2)
  1. YASMIN [Suspect]
     Indication: HORMONE LEVEL ABNORMAL
     Dosage: ONE PILL DAILY PO
     Route: 048
     Dates: start: 20050416, end: 20060217
  2. YASMIN [Suspect]
     Indication: PREMENSTRUAL SYNDROME
     Dosage: ONE PILL DAILY PO
     Route: 048
     Dates: start: 20050416, end: 20060217

REACTIONS (15)
  - BLOOD CHOLESTEROL INCREASED [None]
  - DEHYDRATION [None]
  - DRY EYE [None]
  - FATIGUE [None]
  - HEADACHE [None]
  - HYPOAESTHESIA [None]
  - IMPAIRED WORK ABILITY [None]
  - INSOMNIA [None]
  - LOSS OF LIBIDO [None]
  - MIGRAINE [None]
  - MOOD ALTERED [None]
  - PAIN [None]
  - PARAESTHESIA [None]
  - PHOTOPHOBIA [None]
  - VERTIGO [None]
